FAERS Safety Report 16820959 (Version 1)
Quarter: 2019Q3

REPORT INFORMATION
  Report Type: Spontaneous
  Country: JP (occurrence: JP)
  Receive Date: 20190918
  Receipt Date: 20190918
  Transmission Date: 20191005
  Serious: Yes (Hospitalization)
  Sender: FDA-Public Use
  Company Number: JP-ALKEM LABORATORIES LIMITED-US-ALKEM-2019-05083

PATIENT
  Age: 23 Year
  Sex: Female

DRUGS (12)
  1. OLANZAPINE. [Suspect]
     Active Substance: OLANZAPINE
     Dosage: TITRATED UP TO 10 MILLIGRAM, QD
     Route: 065
     Dates: start: 200611
  2. ARIPIPRAZOLE. [Suspect]
     Active Substance: ARIPIPRAZOLE
     Dosage: 6 MILLIGRAM, QD
     Route: 065
     Dates: end: 200906
  3. HALOPERIDOL. [Concomitant]
     Active Substance: HALOPERIDOL
     Indication: SCHIZOPHRENIA
     Dosage: 3 MILLIGRAM, QD
     Route: 065
     Dates: start: 200612, end: 200701
  4. BIPERIDEN [Concomitant]
     Active Substance: BIPERIDEN
     Indication: SCHIZOPHRENIA
     Dosage: 3 MILLIGRAM, QD
     Route: 065
     Dates: start: 200702
  5. HALOPERIDOL. [Concomitant]
     Active Substance: HALOPERIDOL
     Dosage: 6 MILLIGRAM, QD
     Route: 065
     Dates: start: 200701, end: 200702
  6. OLANZAPINE. [Suspect]
     Active Substance: OLANZAPINE
     Dosage: 5 MILLIGRAM, QD
     Route: 065
     Dates: start: 200611, end: 200801
  7. OLANZAPINE. [Suspect]
     Active Substance: OLANZAPINE
     Indication: SCHIZOPHRENIA
     Dosage: 5 MILLIGRAM, QD
     Route: 065
     Dates: start: 200607
  8. HALOPERIDOL. [Concomitant]
     Active Substance: HALOPERIDOL
     Dosage: 3 MILLIGRAM, QD
     Route: 065
     Dates: start: 200702, end: 200801
  9. BIPERIDEN [Concomitant]
     Active Substance: BIPERIDEN
     Dosage: TAPERED OFF
     Route: 065
     Dates: end: 200906
  10. BIPERIDEN [Concomitant]
     Active Substance: BIPERIDEN
     Dosage: 4 MILLIGRAM, QD
     Route: 065
  11. ARIPIPRAZOLE. [Suspect]
     Active Substance: ARIPIPRAZOLE
     Indication: SCHIZOPHRENIA
     Dosage: 3 MILLIGRAM, QD
     Route: 065
     Dates: start: 200801
  12. ARIPIPRAZOLE. [Suspect]
     Active Substance: ARIPIPRAZOLE
     Dosage: TITRATED UP TO 18 MILLIGRAM, QD
     Route: 065
     Dates: start: 200808

REACTIONS (2)
  - Weight increased [Unknown]
  - Spasmodic dysphonia [Recovered/Resolved]
